FAERS Safety Report 8521211-X (Version None)
Quarter: 2012Q3

REPORT INFORMATION
  Report Type: 
  Country: None (occurrence: None)
  Receive Date: 20120719
  Receipt Date: 20120709
  Transmission Date: 20120928
  Serious: Yes (Hospitalization, Other)
  Sender: FDA-Public Use
  Company Number: GB-ROCHE-1066369

PATIENT
  Sex: Female
  Weight: 60 kg

DRUGS (4)
  1. COPEGUS [Suspect]
     Dosage: DOSE REDUCED
     Dates: start: 20110516
  2. BLINDED ALISPORIVIR [Suspect]
     Indication: HEPATITIS C
     Route: 048
     Dates: start: 20101129
  3. PEGASYS [Suspect]
     Indication: HEPATITIS C
     Route: 058
     Dates: start: 20101129
  4. COPEGUS [Suspect]
     Indication: HEPATITIS C
     Dosage: 400 MG AM, 600 MG PM
     Dates: start: 20101129, end: 20110516

REACTIONS (2)
  - CONCOMITANT DISEASE PROGRESSION [None]
  - HAEMORRHOIDS [None]
